FAERS Safety Report 4292459-8 (Version None)
Quarter: 2004Q1

REPORT INFORMATION
  Report Type: 
  Country: None (occurrence: None)
  Receive Date: 20040211
  Receipt Date: 20040211
  Transmission Date: 20041129
  Serious: Yes (Hospitalization)
  Sender: FDA-Public Use
  Company Number: None

PATIENT
  Age: 61 Year
  Sex: Female
  Weight: 72.5755 kg

DRUGS (4)
  1. MITOMYCIN [Suspect]
     Indication: ANAL CANCER
     Dosage: 15 MG X 1 IV BOLUS
     Route: 040
     Dates: start: 20040112
  2. FLUOROURACIL [Suspect]
     Indication: ANAL CANCER
     Dosage: 1544 MG 4 DAYS IV
     Route: 042
     Dates: start: 20040112, end: 20040116
  3. RADIATION THERAPY [Concomitant]
  4. IMODIUM [Concomitant]

REACTIONS (9)
  - BODY TEMPERATURE INCREASED [None]
  - DEHYDRATION [None]
  - DIARRHOEA [None]
  - DIZZINESS [None]
  - MARKEDLY REDUCED DIETARY INTAKE [None]
  - NAUSEA [None]
  - STOMATITIS [None]
  - TACHYCARDIA [None]
  - VOMITING [None]
